FAERS Safety Report 18385599 (Version 1)
Quarter: 2020Q4

REPORT INFORMATION
  Report Type: Spontaneous
  Country: NO (occurrence: NO)
  Receive Date: 20201015
  Receipt Date: 20201015
  Transmission Date: 20210114
  Serious: Yes (Congenital Anomaly)
  Sender: FDA-Public Use
  Company Number: NO-TEVA-2020-NO-1838121

PATIENT
  Age: 0 Year
  Sex: Female

DRUGS (5)
  1. HALDOL [Interacting]
     Active Substance: HALOPERIDOL
     Indication: PSYCHOTIC DISORDER
     Route: 064
  2. ZYPREXA [Interacting]
     Active Substance: OLANZAPINE
     Indication: PSYCHOTIC DISORDER
     Route: 064
  3. DIAZEPAM. [Suspect]
     Active Substance: DIAZEPAM
     Indication: PSYCHOTIC DISORDER
     Route: 064
  4. LITHIONIT [Interacting]
     Active Substance: LITHIUM SULFATE
     Route: 064
  5. ALCOHOL. [Concomitant]
     Active Substance: ALCOHOL

REACTIONS (5)
  - Syndactyly [Unknown]
  - Drug interaction [Unknown]
  - Aplasia [Not Recovered/Not Resolved]
  - Foetal exposure during pregnancy [Unknown]
  - Aplasia [Unknown]

NARRATIVE: CASE EVENT DATE: 20200908
